FAERS Safety Report 14608191 (Version 1)
Quarter: 2018Q1

REPORT INFORMATION
  Report Type: Spontaneous
  Country: US (occurrence: US)
  Receive Date: 20180306
  Receipt Date: 20180306
  Transmission Date: 20180509
  Serious: Yes (Life-Threatening, Hospitalization)
  Sender: FDA-Public Use
  Company Number: None

PATIENT
  Age: 73 Year
  Sex: Female
  Weight: 87.7 kg

DRUGS (2)
  1. ASPIRIN 81 MG TABLET [Concomitant]
     Dates: start: 20180302, end: 20180305
  2. ELIQUIS [Suspect]
     Active Substance: APIXABAN
     Indication: ATRIAL FIBRILLATION
     Route: 048
     Dates: start: 20180305, end: 20180305

REACTIONS (2)
  - Haematoma [None]
  - Pain in extremity [None]

NARRATIVE: CASE EVENT DATE: 20180305
